FAERS Safety Report 9602465 (Version 2)
Quarter: 2013Q4

REPORT INFORMATION
  Report Type: Spontaneous
  Country: US (occurrence: US)
  Receive Date: 20131007
  Receipt Date: 20131111
  Transmission Date: 20140711
  Serious: No
  Sender: FDA-Public Use
  Company Number: US-009507513-1310USA002696

PATIENT
  Age: 15 Year
  Sex: Female
  Weight: 87.75 kg

DRUGS (1)
  1. NEXPLANON [Suspect]
     Indication: CONTRACEPTION
     Dosage: STANDARD DOSE, 3 YEAR IMPLANT
     Route: 058
     Dates: start: 20130724

REACTIONS (3)
  - Device kink [Unknown]
  - Pain in extremity [Recovered/Resolved]
  - Product quality issue [Unknown]
